FAERS Safety Report 14225517 (Version 3)
Quarter: 2018Q2

REPORT INFORMATION
  Report Type: Spontaneous
  Country: US (occurrence: US)
  Receive Date: 20171127
  Receipt Date: 20180515
  Transmission Date: 20180711
  Serious: No
  Sender: FDA-Public Use
  Company Number: US-PFIZER INC-2017509248

PATIENT
  Age: 77 Year
  Sex: Male
  Weight: 108.4 kg

DRUGS (3)
  1. LYRICA [Suspect]
     Active Substance: PREGABALIN
     Indication: PAIN IN EXTREMITY
     Dosage: 200 MG, 3X/DAY
     Route: 048
  2. COUMARIN [Concomitant]
     Active Substance: COUMARIN
     Dosage: UNK
  3. WARFARIN [Concomitant]
     Active Substance: WARFARIN
     Indication: ANTICOAGULANT THERAPY
     Dosage: UNK (I TAKE 7.5 AS NORMAL)

REACTIONS (3)
  - Drug ineffective [Unknown]
  - Arthritis [Unknown]
  - Weight decreased [Unknown]
